FAERS Safety Report 7812715-3 (Version None)
Quarter: 2011Q4

REPORT INFORMATION
  Report Type: 
  Country: None (occurrence: None)
  Receive Date: 20111013
  Receipt Date: 20111003
  Transmission Date: 20120403
  Serious: Yes (Other)
  Sender: FDA-Public Use
  Company Number: FR-ACTELION-A-CH2011-54284

PATIENT
  Sex: Female

DRUGS (2)
  1. ZAVESCA [Suspect]
     Dosage: 200 MG, UNK
     Route: 048
  2. ZAVESCA [Suspect]
     Indication: NIEMANN-PICK DISEASE
     Dosage: 200 MG, OD
     Route: 048
     Dates: start: 20101210

REACTIONS (3)
  - WEIGHT DECREASED [None]
  - CONVULSION [None]
  - GROWTH RETARDATION [None]
